FAERS Safety Report 17251176 (Version 2)
Quarter: 2020Q1

REPORT INFORMATION
  Report Type: Report from Study
  Country: US (occurrence: US)
  Receive Date: 20200109
  Receipt Date: 20200207
  Transmission Date: 20200409
  Serious: Yes (Other)
  Sender: FDA-Public Use
  Company Number: US-ROCHE-2475572

PATIENT
  Age: 54 Year
  Sex: Female

DRUGS (2)
  1. OCREVUS [Suspect]
     Active Substance: OCRELIZUMAB
     Route: 065
  2. OCREVUS [Suspect]
     Active Substance: OCRELIZUMAB
     Indication: RELAPSING MULTIPLE SCLEROSIS
     Route: 065
     Dates: start: 20190416

REACTIONS (14)
  - Pain [Unknown]
  - Neuritis [Unknown]
  - Seasonal allergy [Unknown]
  - Sinusitis [Recovered/Resolved]
  - Lymphocyte count decreased [Unknown]
  - Herpes simplex [Unknown]
  - Upper respiratory tract infection [Not Recovered/Not Resolved]
  - Stress [Unknown]
  - Cough [Not Recovered/Not Resolved]
  - Tooth infection [Recovered/Resolved]
  - Bruxism [Unknown]
  - Gingival erosion [Unknown]
  - Productive cough [Unknown]
  - Trigeminal nerve disorder [Not Recovered/Not Resolved]

NARRATIVE: CASE EVENT DATE: 201909
